FAERS Safety Report 13807404 (Version 2)
Quarter: 2017Q3

REPORT INFORMATION
  Report Type: Spontaneous
  Country: BR (occurrence: BR)
  Receive Date: 20170728
  Receipt Date: 20170802
  Transmission Date: 20171127
  Serious: Yes (Death)
  Sender: FDA-Public Use
  Company Number: BR-ASTRAZENECA-2017SE76668

PATIENT
  Age: 84 Year
  Sex: Female

DRUGS (1)
  1. VANNAIR [Suspect]
     Active Substance: BUDESONIDE\FORMOTEROL FUMARATE DIHYDRATE
     Indication: PULMONARY FIBROSIS
     Dosage: 160/4.5 MCG, UNKNOWN UNKNOWN
     Route: 055
     Dates: start: 201512

REACTIONS (2)
  - Cardiac disorder [Fatal]
  - Death [Fatal]
